FAERS Safety Report 22860066 (Version 6)
Quarter: 2023Q4

REPORT INFORMATION
  Report Type: Spontaneous
  Country: ES (occurrence: ES)
  Receive Date: 20230824
  Receipt Date: 20231221
  Transmission Date: 20240110
  Serious: Yes (Other)
  Sender: FDA-Public Use
  Company Number: ES-ELI_LILLY_AND_COMPANY-ES202305011267

PATIENT
  Age: 70 Year
  Sex: Female
  Weight: 63.8 kg

DRUGS (8)
  1. METFORMIN [Suspect]
     Active Substance: METFORMIN HYDROCHLORIDE
     Indication: Diabetes mellitus
     Dosage: UNK
     Route: 065
  2. ABEMACICLIB [Suspect]
     Active Substance: ABEMACICLIB
     Indication: Breast cancer metastatic
     Dosage: 300 MILLIGRAM, ONCE A DAY
     Route: 048
  3. ABEMACICLIB [Suspect]
     Active Substance: ABEMACICLIB
     Dosage: 150 MILLIGRAM
     Route: 048
     Dates: start: 20230428
  4. ABEMACICLIB [Suspect]
     Active Substance: ABEMACICLIB
     Dosage: 150 MILLIGRAM (RESTARTED)
     Route: 048
     Dates: start: 20230622
  5. ABEMACICLIB [Suspect]
     Active Substance: ABEMACICLIB
     Dosage: 300 MILLIGRAM, ONCE A DAY
     Route: 048
  6. ABEMACICLIB [Suspect]
     Active Substance: ABEMACICLIB
     Dosage: 300 MILLIGRAM, ONCE A DAY
     Route: 048
  7. Dalacin [Concomitant]
     Indication: Device physical property issue
     Dosage: UNK
     Route: 065
  8. LETROZOLE [Concomitant]
     Active Substance: LETROZOLE
     Indication: Breast cancer metastatic
     Dosage: UNK
     Route: 065

REACTIONS (35)
  - Suicidal ideation [Not Recovered/Not Resolved]
  - Conjunctivitis [Recovering/Resolving]
  - Fatigue [Recovering/Resolving]
  - Feeling abnormal [Recovering/Resolving]
  - Gingival pain [Recovering/Resolving]
  - Urinary tract infection [Recovering/Resolving]
  - Vulvovaginitis [Recovering/Resolving]
  - Weight decreased [Recovering/Resolving]
  - Depressed mood [Recovering/Resolving]
  - Gait inability [Not Recovered/Not Resolved]
  - Cystitis [Recovering/Resolving]
  - Dysstasia [Not Recovered/Not Resolved]
  - Nightmare [Unknown]
  - Depression [Recovering/Resolving]
  - Ageusia [Not Recovered/Not Resolved]
  - Decreased appetite [Recovering/Resolving]
  - Decreased immune responsiveness [Recovering/Resolving]
  - Muscle spasms [Not Recovered/Not Resolved]
  - Malaise [Recovering/Resolving]
  - Blood creatinine increased [Unknown]
  - Renal disorder [Recovering/Resolving]
  - Diarrhoea [Recovered/Resolved]
  - Anorectal discomfort [Recovering/Resolving]
  - Dehydration [Unknown]
  - Amnesia [Recovering/Resolving]
  - Ovarian disorder [Recovering/Resolving]
  - Abdominal distension [Recovered/Resolved]
  - Abdominal pain [Recovered/Resolved]
  - Nausea [Recovered/Resolved]
  - Back injury [Unknown]
  - Burning sensation [Recovering/Resolving]
  - Vomiting [Recovered/Resolved]
  - Gastroenteritis viral [Recovered/Resolved]
  - Haemoglobin decreased [Unknown]
  - Alopecia [Recovering/Resolving]

NARRATIVE: CASE EVENT DATE: 20230301
